FAERS Safety Report 23144154 (Version 2)
Quarter: 2023Q4

REPORT INFORMATION
  Report Type: Spontaneous
  Country: GB (occurrence: GB)
  Receive Date: 20231103
  Receipt Date: 20231129
  Transmission Date: 20240109
  Serious: Yes (Hospitalization)
  Sender: FDA-Public Use
  Company Number: 293741_0000841819_000000000092196

PATIENT
  Sex: Female

DRUGS (26)
  1. CLOZARIL [Suspect]
     Active Substance: CLOZAPINE
     Indication: Schizophrenia
     Dosage: 275 MILLIGRAM, HS
     Route: 048
     Dates: start: 20010701
  2. VORTIOXETINE [Concomitant]
     Active Substance: VORTIOXETINE
     Dosage: ONE TO BE TAKEN EACH DAY. CAN BE INCREASED IN  INCREMENTS OF 5MG EVERY 4 WEEKS, UPTO 20MG ONCE A  DA
     Route: 065
  3. DOXYCYCLINE [Concomitant]
     Active Substance: DOXYCYCLINE
     Indication: Lower respiratory tract infection
     Dosage: ONCE A DAY FOR LRTI
     Route: 065
  4. HYOSCINE HYDROBROMIDE TRIHYDRATE [Concomitant]
     Indication: Salivary hypersecretion
     Dosage: ONE TABLET UP TO 3 TIMES A DAY FOR EXCESS SALIVATION  AS REQUIRED
     Route: 065
  5. CO AMILOFRUSE [Concomitant]
     Active Substance: AMILORIDE HYDROCHLORIDE\FUROSEMIDE
     Dosage: ONE TO BE TAKEN EACH DAY AT 14:00
     Route: 065
  6. FUROSEMIDE [Concomitant]
     Active Substance: FUROSEMIDE
     Dosage: ONE TO BE TAKEN EACH MORNING AT 08:00
     Route: 065
  7. SODIUM CHLORIDE [Concomitant]
     Active Substance: SODIUM CHLORIDE
     Dosage: AS DIRECTED
     Route: 065
  8. HONEY [Concomitant]
     Active Substance: HONEY
     Dosage: USE TWICE A DAY AT 08:00 AND 17:00
     Route: 065
  9. BECLOMETHASONE DIPROPIONATE\FORMOTEROL FUMARATE\GLYCOPYRROLATE [Concomitant]
     Active Substance: BECLOMETHASONE DIPROPIONATE\FORMOTEROL FUMARATE\GLYCOPYRROLATE
     Dosage: TWO PUFFS TO BE INHALED TWICE A DAY
     Route: 055
  10. ACETAMINOPHEN [Concomitant]
     Active Substance: ACETAMINOPHEN
     Dosage: ONE TO BE TAKEN EVERY 4-6 HOURS UP TO FOUR TIMES  A DAY
     Route: 065
  11. BUPRENORPHINE [Concomitant]
     Active Substance: BUPRENORPHINE
     Dosage: APPLY ONE PATCH EACH WEEK AS DIRECTED. THIS IS TO  ADD TO THE 10MCG (TOTAL OF 15MCG) REMOVE OLD  PAT
     Route: 065
  12. IBUPROFEN [Concomitant]
     Active Substance: IBUPROFEN
     Indication: Pain
     Dosage: APPLY UP TO THREE TIMES A DAY IF NEEDED FOR PAIN
     Route: 065
  13. CARBOCYSTEINE [Concomitant]
     Active Substance: CARBOCYSTEINE
     Dosage: TWO TO BE TAKEN TWICE DAILY AT 08:00 AND 22:00
     Route: 065
  14. POLYETHYLENE GLYCOL 3350\POTASSIUM CHLORIDE\SODIUM BICARBONATE\SODIUM [Concomitant]
     Active Substance: POLYETHYLENE GLYCOL 3350\POTASSIUM CHLORIDE\SODIUM BICARBONATE\SODIUM CHLORIDE
     Dosage: DISSOLVE CONTENTS OF ONE SACHET IN HALF A GLASS  (125ML) OF WATER AND TAKE EACH DAY
     Route: 048
  15. BUPRENORPHINE [Concomitant]
     Active Substance: BUPRENORPHINE
     Dosage: APPLY ONE PATCH EACH WEEK AS DIRECTED. REMOVE  OLD PATCH BEFORE APPLYING NEW PATCH
     Route: 062
  16. SENNA [Concomitant]
     Active Substance: SENNA LEAF\SENNOSIDES\SENNOSIDES A AND B
     Dosage: TWO TO BE TAKEN AT NIGHT
     Route: 065
  17. PREGABALIN [Concomitant]
     Active Substance: PREGABALIN
     Dosage: ONE TO BE TAKEN TWICE A DAY
     Route: 065
  18. FLUTICASONE FUROATE [Concomitant]
     Active Substance: FLUTICASONE FUROATE
     Dosage: 1 SPRAY TO EACH NOSTRIL DAILY
     Route: 055
  19. LANOLIN\LIGHT MINERAL OIL\PARAFFIN [Concomitant]
     Active Substance: LANOLIN\LIGHT MINERAL OIL\PARAFFIN
     Dosage: APPLY WHEN REQUIRED
     Route: 065
  20. ARIPIPRAZOLE [Concomitant]
     Active Substance: ARIPIPRAZOLE
     Dosage: ONE TO BE TAKEN EACH NIGHT
     Route: 065
  21. CALCIUM CARBONATE\SODIUM ALGINATE\SODIUM BICARBONATE [Concomitant]
     Active Substance: CALCIUM CARBONATE\SODIUM ALGINATE\SODIUM BICARBONATE
     Dosage: 10-20ML TO BE TAKEN AFTER MEALS AND AT BEDTIME
     Route: 065
  22. ALBUTEROL [Concomitant]
     Active Substance: ALBUTEROL
     Dosage: TWO PUFFS TO BE INHALED FOUR TIMES A DAY WHEN  REQUIRED
     Route: 055
  23. MONTELUKAST [Concomitant]
     Active Substance: MONTELUKAST SODIUM
     Dosage: ONE TO BE TAKEN AT NIGHT
     Route: 065
  24. PYRIDOXINE [Concomitant]
     Active Substance: PYRIDOXINE
     Dosage: TWO TO BE TAKEN EACH DAY
     Route: 065
  25. LANSOPRAZOLE [Concomitant]
     Active Substance: LANSOPRAZOLE
     Dosage: ONE TO BE TAKEN EACH MORNING
     Route: 065
  26. QUININE BISULFATE [Concomitant]
     Active Substance: QUININE BISULFATE
     Dosage: ONE TO BE TAKEN AT NIGHT
     Route: 065

REACTIONS (1)
  - Chronic obstructive pulmonary disease [Recovering/Resolving]
